FAERS Safety Report 7922605-3 (Version None)
Quarter: 2011Q4

REPORT INFORMATION
  Report Type: 
  Country: None (occurrence: None)
  Receive Date: 20111117
  Receipt Date: 20101228
  Transmission Date: 20120403
  Serious: No
  Sender: FDA-Public Use
  Company Number: US-ALLERGAN-1016821US

PATIENT
  Age: 53 Year
  Sex: Female

DRUGS (1)
  1. COMBIGAN [Suspect]
     Indication: GLAUCOMA
     Dosage: 2 GTT, SINGLE
     Dates: start: 20101227, end: 20101227

REACTIONS (5)
  - EYE IRRITATION [None]
  - DRY EYE [None]
  - GLOSSODYNIA [None]
  - DRY SKIN [None]
  - EYE PRURITUS [None]
